FAERS Safety Report 6221946-8 (Version None)
Quarter: 2009Q2

REPORT INFORMATION
  Report Type: 
  Country: None (occurrence: None)
  Receive Date: 20090609
  Receipt Date: 20090609
  Transmission Date: 20091009
  Serious: Yes (Hospitalization)
  Sender: FDA-Public Use
  Company Number: None

PATIENT
  Sex: Male
  Weight: 100 kg

DRUGS (4)
  1. PREDNISONE TAB [Suspect]
     Dosage: 10 MG
  2. CASODEX [Suspect]
     Dosage: 50 MG
  3. TAXOTERE [Suspect]
     Dosage: 166 MG
  4. LEUPROLIDE ACETATE [Suspect]
     Dosage: 45 MG

REACTIONS (3)
  - DRUG DOSE OMISSION [None]
  - ELECTROLYTE IMBALANCE [None]
  - INAPPROPRIATE ANTIDIURETIC HORMONE SECRETION [None]
